FAERS Safety Report 7895419-0 (Version None)
Quarter: 2011Q4

REPORT INFORMATION
  Report Type: 
  Country: None (occurrence: None)
  Receive Date: 20111104
  Receipt Date: 20111104
  Transmission Date: 20120403
  Serious: Yes (Hospitalization, Disabling)
  Sender: FDA-Public Use
  Company Number: None

PATIENT
  Sex: Female
  Weight: 113.3993 kg

DRUGS (1)
  1. NALBUPHINE HYDROCHLORIDE [Suspect]

REACTIONS (7)
  - ASTHENIA [None]
  - HEMIPLEGIA [None]
  - TREMOR [None]
  - FATIGUE [None]
  - APHASIA [None]
  - HYPERHIDROSIS [None]
  - LOSS OF CONSCIOUSNESS [None]
